FAERS Safety Report 8052557-X (Version None)
Quarter: 2012Q1

REPORT INFORMATION
  Report Type: 
  Country: None (occurrence: None)
  Receive Date: 20120117
  Receipt Date: 20120117
  Transmission Date: 20120608
  Serious: Yes (Hospitalization)
  Sender: FDA-Public Use
  Company Number: None

PATIENT
  Age: 77 Year
  Sex: Male
  Weight: 73.8 kg

DRUGS (1)
  1. CIPROFLOXACIN [Suspect]
     Dosage: 250 MG AM PO
     Route: 048
     Dates: start: 20110821, end: 20110824

REACTIONS (2)
  - VOMITING [None]
  - NAUSEA [None]
